FAERS Safety Report 4576998-8 (Version None)
Quarter: 2005Q1

REPORT INFORMATION
  Report Type: 
  Country: None (occurrence: None)
  Receive Date: 20050208
  Receipt Date: 20050124
  Transmission Date: 20050727
  Serious: Yes (Death, Hospitalization)
  Sender: FDA-Public Use
  Company Number: 211988

PATIENT
  Age: 12 Year
  Sex: Male
  Weight: 111 kg

DRUGS (7)
  1. PROTROPIN [Suspect]
     Indication: GROWTH HORMONE DEFICIENCY
     Dosage: 3.75 MG, QD, SUBCUTANEOUS
     Route: 058
     Dates: start: 19940929, end: 20010101
  2. DOPAMINE HCL [Concomitant]
  3. EPINEPHRINE [Concomitant]
  4. PHENYLEPHRINE (PHENYLEPHRINE HYDROCHLORIDE) [Concomitant]
  5. PLATELETS (PLATELETS CONCENTRATE) [Concomitant]
  6. FRESH FROZEN PLASMA [Concomitant]
  7. DROTRECOGIN ALFA (DROTRECOGIN ALFA) [Concomitant]

REACTIONS (37)
  - ANOXIA [None]
  - BACTERIAL INFECTION [None]
  - BLOOD ELECTROLYTES ABNORMAL [None]
  - BRAIN HERNIATION [None]
  - BRAIN OEDEMA [None]
  - BRAIN SCAN ABNORMAL [None]
  - COAGULOPATHY [None]
  - DEHYDRATION [None]
  - DIABETIC HYPEROSMOLAR COMA [None]
  - DIABETIC KETOACIDOSIS [None]
  - DISEASE RECURRENCE [None]
  - ELECTROENCEPHALOGRAM ABNORMAL [None]
  - GLYCOSYLATED HAEMOGLOBIN INCREASED [None]
  - HAEMODIALYSIS [None]
  - HYPERNATRAEMIA [None]
  - HYPOTENSION [None]
  - HYPOTONIA [None]
  - INJURY [None]
  - MENTAL STATUS CHANGES [None]
  - MOVEMENT DISORDER [None]
  - MULTI-ORGAN FAILURE [None]
  - MUSCLE TWITCHING [None]
  - PANCREATITIS ACUTE [None]
  - PARTIAL SEIZURES [None]
  - PNEUMOCOCCAL SEPSIS [None]
  - PNEUMONIA STREPTOCOCCAL [None]
  - PUPIL FIXED [None]
  - RENAL FAILURE ACUTE [None]
  - SEPSIS SYNDROME [None]
  - SHOCK [None]
  - STAPHYLOCOCCAL INFECTION [None]
  - SYSTEMIC INFLAMMATORY RESPONSE SYNDROME [None]
  - TACHYCARDIA [None]
  - THROMBOCYTOPENIA [None]
  - TREATMENT NONCOMPLIANCE [None]
  - VENTRICULAR DYSFUNCTION [None]
  - VENTRICULAR HYPERTROPHY [None]
